FAERS Safety Report 22284055 (Version 1)
Quarter: 2023Q2

REPORT INFORMATION
  Report Type: Report from Study
  Country: US (occurrence: US)
  Receive Date: 20230504
  Receipt Date: 20230504
  Transmission Date: 20230721
  Serious: No
  Sender: FDA-Public Use
  Company Number: US-BIOVITRUM-2023-US-010115

PATIENT
  Age: 4 Month
  Sex: Male

DRUGS (2)
  1. SYNAGIS [Suspect]
     Active Substance: PALIVIZUMAB
     Indication: Antiviral prophylaxis
     Dosage: EVERY 28 DAYS
     Route: 030
     Dates: start: 20230407
  2. PULMICORT FLEXHALER [Concomitant]
     Active Substance: BUDESONIDE
     Indication: Product used for unknown indication

REACTIONS (2)
  - Pyrexia [Unknown]
  - Injection site rash [Unknown]
